FAERS Safety Report 8807607 (Version 1)
Quarter: 2012Q4

REPORT INFORMATION
  Report Type: 
  Country: US (occurrence: US)
  Receive Date: 20120925
  Receipt Date: 20120925
  Transmission Date: 20130627
  Serious: Yes (Death)
  Sender: FDA-Public Use
  Company Number: US-PFIZER INC-2012233625

PATIENT
  Age: 57 Year
  Sex: Male

DRUGS (5)
  1. INLYTA [Suspect]
     Indication: RENAL CANCER
     Dosage: 5 mg, 2x/day
     Route: 048
     Dates: start: 20120310, end: 20120707
  2. ATENOLOL [Concomitant]
     Dosage: UNK
  3. SENNA [Concomitant]
     Dosage: UNK
  4. ATIVAN [Concomitant]
     Dosage: UNK
  5. DEXAMETHASONE [Concomitant]
     Dosage: UNK

REACTIONS (1)
  - Death [Fatal]
